FAERS Safety Report 20490647 (Version 5)
Quarter: 2023Q1

REPORT INFORMATION
  Report Type: Spontaneous
  Country: US (occurrence: US)
  Receive Date: 20220218
  Receipt Date: 20230111
  Transmission Date: 20230418
  Serious: No
  Sender: FDA-Public Use
  Company Number: US-PFIZER INC-202200106546

PATIENT
  Age: 70 Year
  Sex: Male

DRUGS (4)
  1. BRAFTOVI [Suspect]
     Active Substance: ENCORAFENIB
     Indication: Ear neoplasm malignant
     Dosage: 75 MG
     Dates: start: 20220325
  2. BRAFTOVI [Suspect]
     Active Substance: ENCORAFENIB
     Dosage: 450 MG
  3. MEKTOVI [Suspect]
     Active Substance: BINIMETINIB
     Indication: Ear neoplasm malignant
     Dosage: 15 MG
     Dates: start: 20220325
  4. MEKTOVI [Suspect]
     Active Substance: BINIMETINIB
     Dosage: 45 MG

REACTIONS (5)
  - Off label use [Unknown]
  - Decreased activity [Unknown]
  - Feeling abnormal [Unknown]
  - Drug effective for unapproved indication [Unknown]
  - Hypoacusis [Unknown]
